FAERS Safety Report 5298025-X (Version None)
Quarter: 2007Q1

REPORT INFORMATION
  Report Type: 
  Country: None (occurrence: None)
  Receive Date: 20070201
  Receipt Date: 20061102
  Transmission Date: 20070707
  Serious: No
  Sender: FDA-Public Use
  Company Number: 2006PV024510

PATIENT
  Age: 76 Year
  Sex: Male
  Weight: 97.5234 kg

DRUGS (4)
  1. BYETTA [Suspect]
     Indication: DIABETES MELLITUS NON-INSULIN-DEPENDENT
     Dosage: 10 MCG;BID;SC
     Route: 058
     Dates: start: 20061025
  2. GLUCOTROL [Concomitant]
  3. ACTOPLUS MET [Concomitant]
  4. GLUCOPHAGE [Concomitant]

REACTIONS (6)
  - BLOOD GLUCOSE INCREASED [None]
  - DECREASED APPETITE [None]
  - ERUCTATION [None]
  - GASTROOESOPHAGEAL REFLUX DISEASE [None]
  - NAUSEA [None]
  - WEIGHT DECREASED [None]
